FAERS Safety Report 6438504-2 (Version None)
Quarter: 2009Q4

REPORT INFORMATION
  Report Type: 
  Country: None (occurrence: None)
  Receive Date: 20091110
  Receipt Date: 20091027
  Transmission Date: 20100525
  Serious: Yes (Death)
  Sender: FDA-Public Use
  Company Number: MPS1-1000276

PATIENT
  Age: 12 Year
  Sex: Male

DRUGS (2)
  1. ALDURAZYME [Suspect]
     Indication: MUCOPOLYSACCHARIDOSIS I
     Dosage: 0.58 MG/KG,
     Dates: start: 20060109, end: 20091007
  2. AMLODIPINE [Concomitant]

REACTIONS (4)
  - ABDOMINAL PAIN [None]
  - CARDIAC DISORDER [None]
  - RESPIRATORY DISORDER [None]
  - SINUSITIS [None]
